FAERS Safety Report 23594339 (Version 2)
Quarter: 2024Q2

REPORT INFORMATION
  Report Type: Spontaneous
  Country: US (occurrence: US)
  Receive Date: 20240305
  Receipt Date: 20240606
  Transmission Date: 20240716
  Serious: Yes (Hospitalization, Other)
  Sender: FDA-Public Use
  Company Number: US-BRISTOL-MYERS SQUIBB COMPANY-2024-032604

PATIENT
  Age: 67 Year
  Sex: Male

DRUGS (1)
  1. REVLIMID [Suspect]
     Active Substance: LENALIDOMIDE
     Indication: Plasma cell myeloma
     Dosage: ONE CAP 21 DAYS AND 7 DAYS OFF
     Route: 048

REACTIONS (5)
  - Thrombosis [Unknown]
  - Pneumonia influenzal [Unknown]
  - Product dose omission issue [Unknown]
  - Product supply issue [Unknown]
  - Therapy interrupted [Unknown]
